FAERS Safety Report 25800925 (Version 1)
Quarter: 2025Q3

REPORT INFORMATION
  Report Type: Spontaneous
  Country: US (occurrence: US)
  Receive Date: 20250915
  Receipt Date: 20250915
  Transmission Date: 20251020
  Serious: No
  Sender: STRIDES
  Company Number: US-STRIDES ARCOLAB LIMITED-2025SP009455

PATIENT
  Age: 75 Year
  Sex: Female

DRUGS (7)
  1. FLUOXETINE [Interacting]
     Active Substance: FLUOXETINE HYDROCHLORIDE
     Indication: Obsessive-compulsive disorder
     Route: 065
  2. TROSPIUM CHLORIDE\XANOMELINE [Interacting]
     Active Substance: TROSPIUM CHLORIDE\XANOMELINE
     Indication: Schizophrenia
     Route: 065
  3. TROSPIUM CHLORIDE\XANOMELINE [Interacting]
     Active Substance: TROSPIUM CHLORIDE\XANOMELINE
     Route: 065
  4. TROSPIUM CHLORIDE\XANOMELINE [Interacting]
     Active Substance: TROSPIUM CHLORIDE\XANOMELINE
     Route: 065
  5. DONEPEZIL [Concomitant]
     Active Substance: DONEPEZIL
     Indication: Dementia Alzheimer^s type
     Route: 065
  6. MEMANTINE [Concomitant]
     Active Substance: MEMANTINE
     Indication: Dementia Alzheimer^s type
     Route: 065
  7. CLOZAPINE [Concomitant]
     Active Substance: CLOZAPINE
     Indication: Schizophrenia
     Route: 065

REACTIONS (2)
  - Drug interaction [Recovered/Resolved]
  - Nausea [Recovered/Resolved]
